FAERS Safety Report 11453519 (Version 1)
Quarter: 2015Q3

REPORT INFORMATION
  Report Type: Spontaneous
  Country: US (occurrence: US)
  Receive Date: 20150831
  Receipt Date: 20150831
  Transmission Date: 20151125
  Serious: No
  Sender: FDA-Public Use
  Company Number: US-ELI_LILLY_AND_COMPANY-US200911006287

PATIENT
  Sex: Male

DRUGS (1)
  1. CYMBALTA [Suspect]
     Active Substance: DULOXETINE HYDROCHLORIDE
     Indication: MAJOR DEPRESSION
     Dosage: UNK MG, UNK
     Route: 048

REACTIONS (5)
  - Drug withdrawal syndrome [Unknown]
  - Burning sensation [Unknown]
  - Feeling abnormal [Unknown]
  - Dizziness [Unknown]
  - Hyperhidrosis [Unknown]
